FAERS Safety Report 5248698-2 (Version None)
Quarter: 2007Q1

REPORT INFORMATION
  Report Type: 
  Country: None (occurrence: None)
  Receive Date: 20070222
  Receipt Date: 20070214
  Transmission Date: 20070707
  Serious: Yes (Other)
  Sender: FDA-Public Use
  Company Number: SPV1-2007-00738

PATIENT
  Sex: Female

DRUGS (1)
  1. DAYTRANA [Suspect]
     Dates: start: 20070207

REACTIONS (6)
  - EYE DISORDER [None]
  - EYE ROLLING [None]
  - LETHARGY [None]
  - LOSS OF CONSCIOUSNESS [None]
  - PALLOR [None]
  - SKIN DISCOLOURATION [None]
